FAERS Safety Report 8262597-3 (Version None)
Quarter: 2012Q2

REPORT INFORMATION
  Report Type: 
  Country: None (occurrence: None)
  Receive Date: 20120405
  Receipt Date: 20120328
  Transmission Date: 20120825
  Serious: Yes (Hospitalization)
  Sender: FDA-Public Use
  Company Number: US-ASTRAZENECA-2012SE21120

PATIENT
  Sex: Female

DRUGS (2)
  1. SEROQUEL [Suspect]
     Indication: BIPOLAR DISORDER
     Dosage: 200 MG, ONE AT NOON AND TWO AT BEDTIME
     Route: 048
     Dates: start: 20010601
  2. RISPERIDONE [Suspect]
     Dates: start: 20110407

REACTIONS (9)
  - RHINORRHOEA [None]
  - DRUG INEFFECTIVE [None]
  - SNEEZING [None]
  - HEADACHE [None]
  - VOMITING [None]
  - NAUSEA [None]
  - INTENTIONAL DRUG MISUSE [None]
  - DIARRHOEA [None]
  - COUGH [None]
